FAERS Safety Report 9189821 (Version 2)
Quarter: 2013Q2

REPORT INFORMATION
  Report Type: Spontaneous
  Country: GB (occurrence: None)
  Receive Date: 20130322
  Receipt Date: 20130422
  Transmission Date: 20140414
  Serious: Yes (Other)
  Sender: FDA-Public Use
  Company Number: ADR-2013-00476

PATIENT
  Sex: Male

DRUGS (1)
  1. BACLOFEN [Suspect]

REACTIONS (2)
  - Hypersensitivity [None]
  - Device issue [None]
